FAERS Safety Report 8821533 (Version 2)
Quarter: 2012Q4

REPORT INFORMATION
  Report Type: 
  Country: US (occurrence: US)
  Receive Date: 20121002
  Receipt Date: 20121116
  Transmission Date: 20130627
  Serious: Yes (Death)
  Sender: FDA-Public Use
  Company Number: US-PFIZER INC-2012242698

PATIENT
  Age: 57 Year
  Sex: Male

DRUGS (2)
  1. RAPAMUNE [Suspect]
     Indication: HEART TRANSPLANT
     Dosage: 1 mg, 2x/day
     Route: 048
     Dates: start: 20071114
  2. TACROLIMUS [Concomitant]
     Dosage: 0.5
     Dates: end: 20110620

REACTIONS (3)
  - Hepatic cancer metastatic [Fatal]
  - Lung cancer metastatic [Fatal]
  - Off label use [Unknown]
